FAERS Safety Report 11414589 (Version 3)
Quarter: 2015Q4

REPORT INFORMATION
  Report Type: Spontaneous
  Country: US (occurrence: US)
  Receive Date: 20150825
  Receipt Date: 20151018
  Transmission Date: 20160304
  Serious: Yes (Hospitalization, Other)
  Sender: FDA-Public Use
  Company Number: US-UCBSA-2015013372

PATIENT
  Age: 67 Year
  Sex: Female

DRUGS (5)
  1. CIMZIA [Suspect]
     Active Substance: CERTOLIZUMAB PEGOL
     Indication: CROHN^S DISEASE
     Dosage: 400 MG, MONTHLY (QM)
     Route: 058
  2. COZAAR [Concomitant]
     Active Substance: LOSARTAN POTASSIUM
     Indication: HYPERTENSION
     Dosage: 100 MG, ONCE DAILY (QD)
     Route: 048
  3. CIMZIA [Suspect]
     Active Substance: CERTOLIZUMAB PEGOL
     Dosage: 400 MG, EV 3 WEEKS (2 SYRINGES) UNDER THE SKIN
     Route: 058
     Dates: start: 20150604, end: 201507
  4. SINGULAIR [Concomitant]
     Active Substance: MONTELUKAST SODIUM
     Indication: RESPIRATORY TRACT CONGESTION
     Dosage: UNK
     Dates: start: 2015
  5. PENTASA [Concomitant]
     Active Substance: MESALAMINE
     Indication: CROHN^S DISEASE
     Dosage: 1000 MG, 4X/DAY (QID)
     Dates: start: 201507

REACTIONS (7)
  - Diarrhoea [Recovering/Resolving]
  - Dehydration [Recovered/Resolved]
  - Peripheral swelling [Recovered/Resolved]
  - Crohn^s disease [Recovering/Resolving]
  - Inappropriate schedule of drug administration [Unknown]
  - Respiratory tract congestion [Recovered/Resolved]
  - Blood pressure abnormal [Recovered/Resolved]

NARRATIVE: CASE EVENT DATE: 20150604
